FAERS Safety Report 19235986 (Version 10)
Quarter: 2022Q2

REPORT INFORMATION
  Report Type: Report from Study
  Country: US (occurrence: US)
  Receive Date: 20210510
  Receipt Date: 20220506
  Transmission Date: 20220721
  Serious: Yes (Other)
  Sender: FDA-Public Use
  Company Number: US-CLOVIS ONCOLOGY-CLO-2021-000718

PATIENT
  Age: 68 Year
  Sex: Female

DRUGS (5)
  1. RUBRACA [Suspect]
     Active Substance: RUCAPARIB CAMSYLATE
     Indication: Ovarian cancer
     Dosage: 500 MILLIGRAM, BID
     Route: 048
     Dates: start: 20210425, end: 20210720
  2. RUBRACA [Suspect]
     Active Substance: RUCAPARIB CAMSYLATE
     Dosage: 400 MILLIGRAM, BID
     Dates: start: 20210425, end: 20210720
  3. RUBRACA [Suspect]
     Active Substance: RUCAPARIB CAMSYLATE
     Dosage: 200 MG IN AM/400 MG IN PM
     Route: 048
     Dates: start: 20220114, end: 20220317
  4. RUBRACA [Suspect]
     Active Substance: RUCAPARIB CAMSYLATE
     Dosage: 200 MG IN AM/400 MG IN PM
     Route: 048
     Dates: start: 20220428
  5. ZYRTEC [Concomitant]
     Active Substance: CETIRIZINE HYDROCHLORIDE
     Indication: Seasonal allergy
     Dosage: OCCASIONALLY

REACTIONS (25)
  - Neuropathy peripheral [Recovering/Resolving]
  - Intestinal mass [Unknown]
  - Thrombocytopenia [Recovering/Resolving]
  - Flatulence [Not Recovered/Not Resolved]
  - Faeces discoloured [Unknown]
  - Alopecia [Unknown]
  - Glucose tolerance impaired [Not Recovered/Not Resolved]
  - Liver function test increased [Unknown]
  - Splenomegaly [Unknown]
  - Insomnia [Not Recovered/Not Resolved]
  - Headache [Recovered/Resolved]
  - Constipation [Recovered/Resolved]
  - Abdominal distension [Not Recovered/Not Resolved]
  - Skin burning sensation [Unknown]
  - Abdominal pain [Unknown]
  - Photosensitivity reaction [Not Recovered/Not Resolved]
  - Dysgeusia [Not Recovered/Not Resolved]
  - Vomiting [Unknown]
  - Fatigue [Not Recovered/Not Resolved]
  - Asthenia [Recovering/Resolving]
  - White blood cell count decreased [Unknown]
  - Hepatic enzyme increased [Not Recovered/Not Resolved]
  - Nausea [Recovered/Resolved]
  - Dizziness [Recovered/Resolved]
  - Product dose omission in error [Unknown]

NARRATIVE: CASE EVENT DATE: 20210504
